FAERS Safety Report 18846412 (Version 1)
Quarter: 2021Q1

REPORT INFORMATION
  Report Type: Spontaneous
  Country: US (occurrence: US)
  Receive Date: 20210204
  Receipt Date: 20210204
  Transmission Date: 20210419
  Serious: Yes (Other)
  Sender: FDA-Public Use
  Company Number: US-PFIZER INC-2021070480

PATIENT
  Age: 60 Year
  Sex: Male
  Weight: 72.57 kg

DRUGS (3)
  1. L?ARGININE [ARGININE] [Suspect]
     Active Substance: ARGININE
     Indication: CARDIOVASCULAR DISORDER
  2. L?ARGININE [ARGININE] [Suspect]
     Active Substance: ARGININE
     Indication: PROPHYLAXIS
     Dosage: UNK
     Dates: start: 2019
  3. VIAGRA [Suspect]
     Active Substance: SILDENAFIL CITRATE
     Indication: ERECTILE DYSFUNCTION
     Dosage: 100 MG (100MG TABLET BY MOUTH PRIOR TO SEX)
     Route: 048
     Dates: start: 2016

REACTIONS (2)
  - Expired product administered [Unknown]
  - Blood urine present [Unknown]

NARRATIVE: CASE EVENT DATE: 20210117
